FAERS Safety Report 13006973 (Version 2)
Quarter: 2017Q4

REPORT INFORMATION
  Report Type: Report from Study
  Country: AU (occurrence: AU)
  Receive Date: 20161207
  Receipt Date: 20171114
  Transmission Date: 20180320
  Serious: Yes (Death, Other)
  Sender: FDA-Public Use
  Company Number: AU-CELGENEUS-AUS-2015123091

PATIENT

DRUGS (3)
  1. DEXAMETHASONE IV [Suspect]
     Active Substance: DEXAMETHASONE
     Indication: PLASMA CELL MYELOMA
     Dosage: 5 OR 10MG
     Route: 041
  2. POMALIDOMIDE [Suspect]
     Active Substance: POMALIDOMIDE
     Indication: PLASMA CELL MYELOMA
     Dosage: 3-4MG
     Route: 048
  3. MARIZOMIB [Suspect]
     Active Substance: MARIZOMIB
     Indication: PLASMA CELL MYELOMA
     Dosage: 0.3-0.5 MG/M2
     Route: 041

REACTIONS (37)
  - Pneumonitis [Unknown]
  - Oesophagitis [Unknown]
  - Febrile neutropenia [Unknown]
  - Viral infection [Unknown]
  - Fatigue [Unknown]
  - Pneumonia [Unknown]
  - Muscle spasms [Unknown]
  - Leukopenia [Unknown]
  - Hypophosphataemia [Unknown]
  - Picornavirus infection [Unknown]
  - Neuropathy peripheral [Unknown]
  - Device related infection [Unknown]
  - Urinary tract infection [Unknown]
  - Depression [Unknown]
  - Atrial fibrillation [Unknown]
  - Thrombocytopenia [Unknown]
  - Oedema [Unknown]
  - Deep vein thrombosis [Unknown]
  - Anaemia [Unknown]
  - Constipation [Unknown]
  - Nausea [Unknown]
  - Sepsis [Fatal]
  - Gastrointestinal haemorrhage [Fatal]
  - Plasmacytoma [Fatal]
  - Hypertension [Unknown]
  - Dyspnoea [Unknown]
  - Upper respiratory tract infection [Unknown]
  - Plasma cell myeloma [Fatal]
  - Hyperglycaemia [Unknown]
  - Neutropenia [Unknown]
  - Hypokalaemia [Unknown]
  - Oedema peripheral [Unknown]
  - Diarrhoea [Unknown]
  - Clostridium difficile infection [Unknown]
  - Insomnia [Unknown]
  - Back pain [Unknown]
  - Platelet count decreased [Unknown]
